FAERS Safety Report 11348042 (Version 1)
Quarter: 2015Q3

REPORT INFORMATION
  Report Type: Spontaneous
  Country: US (occurrence: US)
  Receive Date: 20150803
  Receipt Date: 20150803
  Transmission Date: 20151125
  Serious: No
  Sender: FDA-Public Use
  Company Number: US-ELI_LILLY_AND_COMPANY-US201112002205

PATIENT
  Age: 50 Year
  Sex: Male

DRUGS (1)
  1. ZYPREXA [Suspect]
     Active Substance: OLANZAPINE
     Indication: ANXIETY
     Dosage: 15 MG, QD

REACTIONS (9)
  - Heart rate increased [Unknown]
  - Anxiety [Not Recovered/Not Resolved]
  - Fear [Unknown]
  - Depression [Unknown]
  - Panic attack [Unknown]
  - Off label use [Unknown]
  - Asthenia [Unknown]
  - Sleep disorder [Unknown]
  - Hypervigilance [Unknown]
